FAERS Safety Report 4537381-4 (Version None)
Quarter: 2004Q4

REPORT INFORMATION
  Report Type: 
  Country: None (occurrence: None)
  Receive Date: 20041223
  Receipt Date: 20041216
  Transmission Date: 20050328
  Serious: Yes (Disabling)
  Sender: FDA-Public Use
  Company Number: CA-ABBOTT-04P-028-0284202-00

PATIENT
  Age: 62 Year
  Sex: Female

DRUGS (4)
  1. BIAXIN [Suspect]
     Indication: BRONCHITIS
     Dates: start: 20040411
  2. LEVOTHYROXINE SODIUM [Concomitant]
     Indication: HYPOTHYROIDISM
     Dates: start: 19940101
  3. ATORVASTATIN [Concomitant]
     Indication: BLOOD CHOLESTEROL
     Dates: start: 20020101, end: 20040401
  4. ATORVASTATIN [Concomitant]
     Dates: start: 20040101

REACTIONS (2)
  - AGEUSIA [None]
  - ANOSMIA [None]
